FAERS Safety Report 19185468 (Version 1)
Quarter: 2021Q2

REPORT INFORMATION
  Report Type: Spontaneous
  Country: US (occurrence: US)
  Receive Date: 20210427
  Receipt Date: 20210427
  Transmission Date: 20210717
  Serious: No
  Sender: FDA-Public Use
  Company Number: US-MYLANLABS-2021M1022894

PATIENT
  Sex: Female

DRUGS (1)
  1. DENAVIR [Suspect]
     Active Substance: PENCICLOVIR
     Indication: ORAL HERPES
     Dosage: 1 PERCENT, PRN
     Route: 061

REACTIONS (2)
  - Product packaging quantity issue [Unknown]
  - Prescription drug used without a prescription [Not Recovered/Not Resolved]
